FAERS Safety Report 6462584-1 (Version None)
Quarter: 2009Q4

REPORT INFORMATION
  Report Type: 
  Country: None (occurrence: None)
  Receive Date: 20091130
  Receipt Date: 20091118
  Transmission Date: 20100525
  Serious: Yes (Death)
  Sender: FDA-Public Use
  Company Number: JP-PFIZER INC-2009300696

PATIENT
  Age: 67 Year
  Sex: Male

DRUGS (22)
  1. SUNITINIB MALATE [Suspect]
     Indication: RENAL CELL CARCINOMA
     Dosage: 50 MG, 1X/DAY
     Route: 048
     Dates: start: 20090714, end: 20090810
  2. CODEINE PHOSPHATE [Concomitant]
     Route: 048
  3. ALOSENN [Concomitant]
     Route: 048
  4. CARBOCISTEINE [Concomitant]
     Route: 048
  5. AMBROXOL [Concomitant]
  6. LOXOPROFEN SODIUM [Concomitant]
     Route: 048
  7. MUCOSTA [Concomitant]
     Route: 048
  8. SODIUM PICOSULFATE [Concomitant]
     Route: 048
  9. BLOPRESS [Concomitant]
     Route: 048
  10. AMLODIPINE [Concomitant]
     Dosage: UNK
     Route: 048
  11. MAGNESIUM OXIDE [Concomitant]
     Route: 048
  12. ADONA [Concomitant]
     Route: 048
     Dates: start: 20090717
  13. TRANSAMIN [Concomitant]
     Route: 048
     Dates: start: 20090717
  14. NIFEDIPINE [Concomitant]
     Route: 048
     Dates: start: 20090718
  15. LASIX [Concomitant]
     Route: 048
     Dates: start: 20090810
  16. PHENOBARBITAL TAB [Concomitant]
     Route: 030
     Dates: start: 20090820
  17. DEXAMETHASONE SODIUM PHOSPHATE [Concomitant]
     Route: 042
     Dates: start: 20090820
  18. FAMOTIDINE [Concomitant]
     Route: 042
     Dates: start: 20090820
  19. CLARITH [Concomitant]
     Route: 048
  20. NITROGLYCERIN [Concomitant]
     Dosage: UNK
     Route: 062
     Dates: start: 20090824
  21. WAKOBITAL [Concomitant]
     Dosage: UNK
     Route: 054
     Dates: start: 20090824
  22. PETROLATUM [Concomitant]
     Route: 062

REACTIONS (1)
  - DEATH [None]
